FAERS Safety Report 9459886 (Version 1)
Quarter: 2013Q3

REPORT INFORMATION
  Report Type: Spontaneous
  Country: US (occurrence: US)
  Receive Date: 20130815
  Receipt Date: 20130815
  Transmission Date: 20140515
  Serious: Yes (Disabling, Other)
  Sender: FDA-Public Use
  Company Number: US-PFIZER INC-2013232072

PATIENT
  Sex: Male

DRUGS (1)
  1. VIAGRA [Suspect]
     Dosage: UNK

REACTIONS (3)
  - Blindness [Unknown]
  - Neuropathy peripheral [Unknown]
  - Retinopathy [Unknown]
